FAERS Safety Report 9237334 (Version 2)
Quarter: 2013Q2

REPORT INFORMATION
  Report Type: Report from Study
  Country: CA (occurrence: CA)
  Receive Date: 20130417
  Receipt Date: 20130426
  Transmission Date: 20140414
  Serious: Yes (Other)
  Sender: FDA-Public Use
  Company Number: CA-ABBOTT-12P-028-0931352-00

PATIENT
  Sex: Male
  Weight: 99.88 kg

DRUGS (11)
  1. HUMIRA [Suspect]
     Indication: RHEUMATOID ARTHRITIS
     Route: 058
     Dates: start: 20110128, end: 201205
  2. CITALOPRAM [Concomitant]
     Indication: ANTIDEPRESSANT THERAPY
  3. CITALOPRAM [Concomitant]
  4. HYDROXYQUINE [Concomitant]
     Indication: HYPERTENSION
     Route: 048
  5. METOPROLOL [Concomitant]
     Indication: HYPERTENSION
     Route: 048
  6. IRBESARTAN [Concomitant]
     Indication: HYPERTENSION
     Route: 048
  7. CITALOPRAM [Concomitant]
     Indication: SLEEP DISORDER THERAPY
     Dosage: 10MG AND 20 MG
     Route: 048
  8. SIMVASTATIN SANDOZ [Concomitant]
     Indication: PRODUCT USED FOR UNKNOWN INDICATION
     Route: 048
  9. BLOCAL D FORTE [Concomitant]
     Indication: PRODUCT USED FOR UNKNOWN INDICATION
     Route: 048
  10. AMIODIPINE [Concomitant]
     Indication: PRODUCT USED FOR UNKNOWN INDICATION
     Route: 048
  11. TYLENOL [Concomitant]
     Indication: CARPAL TUNNEL SYNDROME
     Route: 048

REACTIONS (4)
  - Prostatic disorder [Not Recovered/Not Resolved]
  - Dysuria [Not Recovered/Not Resolved]
  - Cystitis [Recovered/Resolved]
  - Weight decreased [Not Recovered/Not Resolved]
